FAERS Safety Report 23306235 (Version 2)
Quarter: 2024Q1

REPORT INFORMATION
  Report Type: Other
  Country: US (occurrence: None)
  Receive Date: 20231218
  Receipt Date: 20240305
  Transmission Date: 20240410
  Serious: Yes (Hospitalization, Other)
  Sender: FDA-Public Use
  Company Number: US-ROCHE-3471517

PATIENT
  Age: 46 Year
  Sex: Female
  Weight: 143.01 kg

DRUGS (15)
  1. OCREVUS [Suspect]
     Active Substance: OCRELIZUMAB
     Indication: Relapsing-remitting multiple sclerosis
     Route: 042
  2. BACLOFEN [Suspect]
     Active Substance: BACLOFEN
     Indication: Muscle spasms
     Route: 048
  3. BACLOFEN [Suspect]
     Active Substance: BACLOFEN
     Indication: Multiple sclerosis
  4. SOLU-MEDROL [Suspect]
     Active Substance: METHYLPREDNISOLONE SODIUM SUCCINATE
     Indication: Multiple sclerosis relapse
     Route: 042
  5. ACETAZOLAMIDE [Concomitant]
     Active Substance: ACETAZOLAMIDE
  6. HYDRALAZINE HCL [Concomitant]
     Active Substance: HYDRALAZINE HYDROCHLORIDE
  7. METOPROLOL TARTRATE [Concomitant]
     Active Substance: METOPROLOL TARTRATE
  8. NIFEDIPINE [Concomitant]
     Active Substance: NIFEDIPINE
  9. PREGABALIN [Concomitant]
     Active Substance: PREGABALIN
  10. ALPRAZOLAM [Concomitant]
     Active Substance: ALPRAZOLAM
  11. DICLOFENAC [Concomitant]
     Active Substance: DICLOFENAC
  12. ZALEPLON [Concomitant]
     Active Substance: ZALEPLON
  13. HYDROCHLOROTHIAZIDE\OLMESARTAN MEDOXOMIL [Concomitant]
     Active Substance: HYDROCHLOROTHIAZIDE\OLMESARTAN MEDOXOMIL
  14. ACETAMINOPHEN\HYDROCODONE [Concomitant]
     Active Substance: ACETAMINOPHEN\HYDROCODONE
  15. AJOVY [Concomitant]
     Active Substance: FREMANEZUMAB-VFRM

REACTIONS (11)
  - Fall [Unknown]
  - Cerebrovascular accident [Recovered/Resolved]
  - Blindness unilateral [Not Recovered/Not Resolved]
  - Blindness [Unknown]
  - COVID-19 [Recovered/Resolved]
  - Idiopathic intracranial hypertension [Unknown]
  - Headache [Not Recovered/Not Resolved]
  - Blood glucose increased [Unknown]
  - Lumbar puncture [Recovered/Resolved]
  - Tremor [Not Recovered/Not Resolved]
  - Pain [Unknown]

NARRATIVE: CASE EVENT DATE: 20230101
